FAERS Safety Report 15205703 (Version 1)
Quarter: 2018Q3

REPORT INFORMATION
  Report Type: Spontaneous
  Country: KR (occurrence: KR)
  Receive Date: 20180727
  Receipt Date: 20180727
  Transmission Date: 20181010
  Serious: Yes (Other)
  Sender: FDA-Public Use
  Company Number: KR-INGENUS PHARMACEUTICALS NJ, LLC-ING201807-000716

PATIENT
  Age: 72 Year
  Sex: Male

DRUGS (5)
  1. METHYLPREDNISOLONE. [Concomitant]
     Active Substance: METHYLPREDNISOLONE
  2. SIMVASTATIN. [Concomitant]
     Active Substance: SIMVASTATIN
  3. PROBENECID AND COLCHICINE [Suspect]
     Active Substance: COLCHICINE\PROBENECID
  4. CYCLOSPORINE. [Concomitant]
     Active Substance: CYCLOSPORINE
  5. ASPIRIN. [Concomitant]
     Active Substance: ASPIRIN

REACTIONS (4)
  - Muscular weakness [Recovering/Resolving]
  - Gait disturbance [Recovering/Resolving]
  - Myalgia [Recovering/Resolving]
  - Neuromyopathy [Recovering/Resolving]
